FAERS Safety Report 6981083-1 (Version None)
Quarter: 2010Q3

REPORT INFORMATION
  Report Type: 
  Country: None (occurrence: None)
  Receive Date: 20100827
  Receipt Date: 20091023
  Transmission Date: 20110219
  Serious: Yes (Other)
  Sender: FDA-Public Use
  Company Number: PAR_03243_2009

PATIENT
  Age: 66 Year
  Sex: Female

DRUGS (1)
  1. MEGACE [Suspect]
     Indication: WEIGHT DECREASED
     Dosage: 625 MG/5 ML, ORAL
     Route: 048
     Dates: start: 20090701, end: 20090914

REACTIONS (1)
  - THROMBOSIS [None]
